FAERS Safety Report 6825055-6 (Version None)
Quarter: 2010Q3

REPORT INFORMATION
  Report Type: 
  Country: None (occurrence: None)
  Receive Date: 20100708
  Receipt Date: 20061213
  Transmission Date: 20110219
  Serious: No
  Sender: FDA-Public Use
  Company Number: US-PFIZER INC-2006152419

PATIENT
  Sex: Female
  Weight: 56.25 kg

DRUGS (9)
  1. CHANTIX [Suspect]
     Indication: EX-TOBACCO USER
     Route: 048
     Dates: start: 20061113
  2. ENALAPRIL MALEATE [Concomitant]
  3. HYDROCHLOROTHIAZIDE [Concomitant]
  4. ACETYLSALICYLIC ACID [Concomitant]
  5. METOPROLOL [Concomitant]
  6. NORVASC [Concomitant]
  7. PLAVIX [Concomitant]
  8. DOCUSATE [Concomitant]
  9. LIPITOR [Concomitant]

REACTIONS (1)
  - NAUSEA [None]
